FAERS Safety Report 10011640 (Version 1)
Quarter: 2014Q1

REPORT INFORMATION
  Report Type: Spontaneous
  Country: US (occurrence: US)
  Receive Date: 20140314
  Receipt Date: 20140314
  Transmission Date: 20141002
  Serious: No
  Sender: FDA-Public Use
  Company Number: US-ENDO PHARMACEUTICALS INC.-OXYC20130049

PATIENT
  Age: 56 Year
  Sex: Male
  Weight: 77.18 kg

DRUGS (1)
  1. OXYCODONE HCL 30MG [Suspect]
     Indication: SPINAL FUSION SURGERY
     Route: 048
     Dates: start: 20131003, end: 20131005

REACTIONS (2)
  - Drug screen negative [Not Recovered/Not Resolved]
  - Tinnitus [Unknown]
